FAERS Safety Report 5513294-6 (Version None)
Quarter: 2007Q4

REPORT INFORMATION
  Report Type: 
  Country: None (occurrence: None)
  Receive Date: 20071112
  Receipt Date: 20071108
  Transmission Date: 20080405
  Serious: Yes (Death, Hospitalization)
  Sender: FDA-Public Use
  Company Number: US-SANOFI-SYNTHELABO-F01200601426

PATIENT
  Sex: Female

DRUGS (5)
  1. COUMADIN [Suspect]
     Route: 048
  2. BEVACIZUMAB [Suspect]
     Route: 042
  3. LEUCOVORIN [Suspect]
     Route: 042
  4. FLUOROURACIL [Suspect]
     Dosage: 400 MG/M2 IV BOLUS AND 2400 MG/M2 IV CONTINUOUS INFUSION FOR 46 HOURS
     Route: 042
  5. OXALIPLATIN [Suspect]
     Indication: COLORECTAL CANCER
     Route: 042

REACTIONS (2)
  - HAEMORRHAGE [None]
  - THROMBOSIS [None]
